FAERS Safety Report 8308129-2 (Version None)
Quarter: 2012Q2

REPORT INFORMATION
  Report Type: 
  Country: None (occurrence: None)
  Receive Date: 20120424
  Receipt Date: 20120416
  Transmission Date: 20120825
  Serious: Yes (Hospitalization)
  Sender: FDA-Public Use
  Company Number: DE-ROCHE-1048677

PATIENT
  Sex: Female

DRUGS (7)
  1. MIRCERA [Suspect]
     Indication: PRODUCT USED FOR UNKNOWN INDICATION
     Dates: start: 20090120
  2. ENALAPRIL MALEATE [Concomitant]
     Dates: start: 20081118, end: 20090418
  3. NITROLINGUAL [Concomitant]
     Dates: start: 20090117
  4. DREISAVIT N [Concomitant]
     Dates: start: 20081127
  5. FERRLECIT [Concomitant]
     Dates: start: 20090207, end: 20090428
  6. TORSEMIDE [Concomitant]
     Dates: start: 20090106, end: 20090418
  7. PANTOPRAZOLE [Concomitant]
     Dates: start: 20080819

REACTIONS (2)
  - SHUNT OCCLUSION [None]
  - CARDIAC FAILURE ACUTE [None]
